FAERS Safety Report 4329287-0 (Version None)
Quarter: 2004Q1

REPORT INFORMATION
  Report Type: 
  Country: None (occurrence: None)
  Receive Date: 20040319
  Receipt Date: 20031121
  Transmission Date: 20041129
  Serious: No
  Sender: FDA-Public Use
  Company Number: US-JNJFOC-20030805661

PATIENT
  Age: 61 Year
  Sex: Female
  Weight: 69.4003 kg

DRUGS (2)
  1. ORTHO EVRA [Suspect]
     Indication: MENOPAUSAL SYMPTOMS
     Dosage: ^WAS ON HORMONE REPLACEMENT THERAPY NOT BIRTH CONTROL.^
     Dates: start: 20030718, end: 20030808
  2. PAXIL [Concomitant]

REACTIONS (1)
  - HAEMORRHAGE [None]
